FAERS Safety Report 5871012-6 (Version None)
Quarter: 2008Q3

REPORT INFORMATION
  Report Type: 
  Country: None (occurrence: None)
  Receive Date: 20080904
  Receipt Date: 20080823
  Transmission Date: 20090109
  Serious: Yes (Life-Threatening, Hospitalization, Other)
  Sender: FDA-Public Use
  Company Number: CN-BAYER-200825399GPV

PATIENT
  Age: 34 Year
  Sex: Female

DRUGS (1)
  1. GADOPENTETATE DIMEGLUMINE [Suspect]
     Indication: NUCLEAR MAGNETIC RESONANCE IMAGING
     Route: 037

REACTIONS (6)
  - COMA [None]
  - CONVULSION [None]
  - HEADACHE [None]
  - NAUSEA [None]
  - NEUROTOXICITY [None]
  - VOMITING [None]
